FAERS Safety Report 4593932-5 (Version None)
Quarter: 2005Q1

REPORT INFORMATION
  Report Type: 
  Country: None (occurrence: None)
  Receive Date: 20050225
  Receipt Date: 20050211
  Transmission Date: 20050727
  Serious: Yes (Other)
  Sender: FDA-Public Use
  Company Number: 2005028633

PATIENT
  Sex: Female
  Weight: 76.6579 kg

DRUGS (1)
  1. DRAMAMINE [Suspect]
     Indication: SLEEP DISORDER
     Dosage: 1 TAB HS, ORAL
     Route: 048
     Dates: start: 19990101, end: 20050210

REACTIONS (1)
  - HEPATITIS C [None]
